FAERS Safety Report 13140678 (Version 1)
Quarter: 2017Q1

REPORT INFORMATION
  Report Type: Report from Study
  Country: IT (occurrence: IT)
  Receive Date: 20170123
  Receipt Date: 20170123
  Transmission Date: 20170428
  Serious: Yes (Other)
  Sender: FDA-Public Use
  Company Number: IT-JNJFOC-20170115831

PATIENT
  Age: 69 Year
  Sex: Male

DRUGS (1)
  1. IMBRUVICA [Suspect]
     Active Substance: IBRUTINIB
     Indication: CHRONIC LYMPHOCYTIC LEUKAEMIA
     Route: 048

REACTIONS (6)
  - Skin atrophy [Unknown]
  - Sensory loss [Unknown]
  - Lymphocyte count decreased [Unknown]
  - Platelet count increased [Unknown]
  - Wound [Unknown]
  - Arthralgia [Unknown]
